FAERS Safety Report 5855843-4 (Version None)
Quarter: 2008Q3

REPORT INFORMATION
  Report Type: 
  Country: None (occurrence: None)
  Receive Date: 20080825
  Receipt Date: 20071107
  Transmission Date: 20090109
  Serious: Yes (Other)
  Sender: FDA-Public Use
  Company Number: A0694260A

PATIENT
  Age: 53 Year
  Sex: Male

DRUGS (5)
  1. MALARONE [Suspect]
     Indication: MALARIA PROPHYLAXIS
     Dosage: 1TAB PER DAY
     Route: 048
     Dates: start: 20070730, end: 20070914
  2. ULTRAM [Concomitant]
  3. UNSPECIFIED MEDICATION [Concomitant]
  4. CYCLOBENZAPRINE HCL [Concomitant]
  5. SUDAFED 12 HOUR [Concomitant]

REACTIONS (1)
  - HEPATIC ENZYME INCREASED [None]
